FAERS Safety Report 24706977 (Version 2)
Quarter: 2025Q1

REPORT INFORMATION
  Report Type: Spontaneous
  Country: US (occurrence: US)
  Receive Date: 20241206
  Receipt Date: 20250130
  Transmission Date: 20250409
  Serious: No
  Sender: PFIZER
  Company Number: US-PFIZER INC-202400318509

PATIENT
  Age: 63 Year
  Sex: Female
  Weight: 79.7 kg

DRUGS (6)
  1. IBRANCE [Suspect]
     Active Substance: PALBOCICLIB
     Indication: Breast cancer
     Route: 048
     Dates: start: 20210215, end: 20241203
  2. ATORVASTATIN [Concomitant]
     Active Substance: ATORVASTATIN
  3. LETROZOLE [Concomitant]
     Active Substance: LETROZOLE
  4. LYSINE [Concomitant]
     Active Substance: LYSINE
  5. LORAZEPAM [Concomitant]
     Active Substance: LORAZEPAM
  6. CETIRIZINE [Concomitant]
     Active Substance: CETIRIZINE HYDROCHLORIDE

REACTIONS (1)
  - Tumour marker increased [Not Recovered/Not Resolved]

NARRATIVE: CASE EVENT DATE: 20241204
